FAERS Safety Report 6444005-8 (Version None)
Quarter: 2009Q4

REPORT INFORMATION
  Report Type: 
  Country: None (occurrence: None)
  Receive Date: 20091116
  Receipt Date: 20091116
  Transmission Date: 20100525
  Serious: Yes (Life-Threatening, Hospitalization, Other)
  Sender: FDA-Public Use
  Company Number: None

PATIENT
  Age: 70 Year
  Sex: Male
  Weight: 65.7716 kg

DRUGS (1)
  1. ENBREL [Suspect]
     Indication: RHEUMATOID ARTHRITIS
     Dosage: WEEKLY IM
     Route: 030
     Dates: start: 20070601, end: 20080605

REACTIONS (6)
  - FACIAL PALSY [None]
  - HERPES ZOSTER OTICUS [None]
  - MENINGITIS VIRAL [None]
  - ORAL FUNGAL INFECTION [None]
  - PRODUCT QUALITY ISSUE [None]
  - SKIN LESION [None]
